FAERS Safety Report 26034322 (Version 1)
Quarter: 2025Q4

REPORT INFORMATION
  Report Type: Report from Study
  Country: EU (occurrence: EU)
  Receive Date: 20251112
  Receipt Date: 20251112
  Transmission Date: 20260118
  Serious: Yes (Other)
  Sender: ABBVIE
  Company Number: EU-AFSSAPS-CN2025000962

PATIENT
  Age: 73 Year
  Sex: Female
  Weight: 49 kg

DRUGS (5)
  1. ELAHERE [Suspect]
     Active Substance: MIRVETUXIMAB SORAVTANSINE-GYNX
     Indication: Ovarian cancer
     Dosage: 6 MG/KG - C2
     Route: 042
     Dates: start: 20250516, end: 20250516
  2. ELAHERE [Suspect]
     Active Substance: MIRVETUXIMAB SORAVTANSINE-GYNX
     Indication: Ovarian cancer
     Dosage: 5 MG/KG - C3
     Route: 042
     Dates: start: 20250618, end: 20250618
  3. ELAHERE [Suspect]
     Active Substance: MIRVETUXIMAB SORAVTANSINE-GYNX
     Indication: Ovarian cancer
     Dosage: 4 MG/KG - C5
     Route: 042
     Dates: start: 20250813, end: 20250813
  4. ELAHERE [Suspect]
     Active Substance: MIRVETUXIMAB SORAVTANSINE-GYNX
     Indication: Ovarian cancer
     Dosage: 5 MG/KG - C4
     Route: 042
     Dates: start: 20250717, end: 20250717
  5. ELAHERE [Suspect]
     Active Substance: MIRVETUXIMAB SORAVTANSINE-GYNX
     Indication: Ovarian cancer
     Dosage: 6 MG/KG - C1
     Route: 042
     Dates: start: 20250425, end: 20250425

REACTIONS (1)
  - Keratitis [Recovering/Resolving]

NARRATIVE: CASE EVENT DATE: 20250602
